FAERS Safety Report 4802351-5 (Version None)
Quarter: 2005Q4

REPORT INFORMATION
  Report Type: 
  Country: None (occurrence: None)
  Receive Date: 20051018
  Receipt Date: 20050831
  Transmission Date: 20060501
  Serious: Yes (Other)
  Sender: FDA-Public Use
  Company Number: 200517700GDDC

PATIENT
  Age: 37 Year
  Sex: Female

DRUGS (4)
  1. LANTUS [Suspect]
     Indication: DIABETES MELLITUS
     Route: 058
     Dates: start: 20041211
  2. NOVORAPID [Concomitant]
     Route: 058
     Dates: start: 20041211
  3. LABETALOL [Concomitant]
     Indication: PREGNANCY INDUCED HYPERTENSION
     Route: 048
     Dates: start: 20050302
  4. ASPIRIN [Concomitant]
     Route: 048
     Dates: start: 20041203, end: 20050302

REACTIONS (5)
  - CAESAREAN SECTION [None]
  - DRUG EXPOSURE DURING PREGNANCY [None]
  - FOETAL GROWTH RETARDATION [None]
  - PRE-ECLAMPSIA [None]
  - PREMATURE RUPTURE OF MEMBRANES [None]
